FAERS Safety Report 6342333-8 (Version None)
Quarter: 2009Q3

REPORT INFORMATION
  Report Type: 
  Country: None (occurrence: None)
  Receive Date: 20090907
  Receipt Date: 20090824
  Transmission Date: 20100115
  Serious: Yes (Other)
  Sender: FDA-Public Use
  Company Number: US-PFIZER INC-2009257331

PATIENT
  Sex: Male
  Weight: 121 kg

DRUGS (4)
  1. CHANTIX [Suspect]
     Indication: SMOKING CESSATION THERAPY
     Dosage: 1 MG, 2X/DAY
     Route: 048
     Dates: start: 20090807, end: 20090814
  2. SINGULAIR [Concomitant]
  3. PROZAC [Concomitant]
  4. RISPERDAL [Concomitant]

REACTIONS (2)
  - BIPOLAR DISORDER [None]
  - HALLUCINATION [None]
